FAERS Safety Report 9214528 (Version 2)
Quarter: 2013Q2

REPORT INFORMATION
  Report Type: Spontaneous
  Country: BR (occurrence: BR)
  Receive Date: 20130405
  Receipt Date: 20130405
  Transmission Date: 20140414
  Serious: Yes (Hospitalization, Other)
  Sender: FDA-Public Use
  Company Number: BR-ROCHE-1209556

PATIENT
  Sex: Female
  Weight: 58 kg

DRUGS (8)
  1. HERCEPTIN [Suspect]
     Indication: BREAST CANCER
     Dosage: 1 CYCLE
     Route: 042
     Dates: start: 20120516
  2. HERCEPTIN [Suspect]
     Dosage: 2 CYCLE
     Route: 042
     Dates: start: 20120608
  3. HERCEPTIN [Suspect]
     Dosage: 3 CYCLE
     Route: 042
     Dates: start: 20120629
  4. HERCEPTIN [Suspect]
     Dosage: 4 CYCLE
     Route: 042
     Dates: start: 20120720
  5. HERCEPTIN [Suspect]
     Dosage: 5 CYCLE
     Route: 042
     Dates: start: 20120810
  6. HERCEPTIN [Suspect]
     Dosage: 6 CYCLE
     Route: 042
     Dates: start: 20120831
  7. HERCEPTIN [Suspect]
     Dosage: 7 CYCLE
     Route: 042
     Dates: start: 20120921
  8. DOCETAXEL [Concomitant]
     Indication: BREAST CANCER
     Route: 065
     Dates: start: 20120516

REACTIONS (3)
  - Surgery [Unknown]
  - Tachycardia [Recovered/Resolved]
  - Hypersensitivity [Unknown]
